FAERS Safety Report 8125961-9 (Version None)
Quarter: 2012Q1

REPORT INFORMATION
  Report Type: 
  Country: None (occurrence: None)
  Receive Date: 20120209
  Receipt Date: 20110915
  Transmission Date: 20120608
  Serious: Yes (Life-Threatening)
  Sender: FDA-Public Use
  Company Number: AU-ROCHE-802831

PATIENT
  Age: 35 Year
  Sex: Male
  Weight: 85 kg

DRUGS (2)
  1. ISOTRETINOIN [Suspect]
     Indication: PRODUCT USED FOR UNKNOWN INDICATION
     Route: 065
     Dates: start: 19951115, end: 19960415
  2. BECLOFORTE [Concomitant]

REACTIONS (7)
  - PSYCHOTIC DISORDER [None]
  - SUICIDAL IDEATION [None]
  - DEPRESSION [None]
  - LIP DRY [None]
  - DRY EYE [None]
  - PHOTOSENSITIVITY REACTION [None]
  - MOTOR DYSFUNCTION [None]
